FAERS Safety Report 19838059 (Version 1)
Quarter: 2021Q3

REPORT INFORMATION
  Report Type: Spontaneous
  Country: DE (occurrence: DE)
  Receive Date: 20210916
  Receipt Date: 20210916
  Transmission Date: 20211014
  Serious: Yes (Death, Life-Threatening, Hospitalization)
  Sender: FDA-Public Use
  Company Number: DE-TEVA-2021-DE-1951494

PATIENT
  Age: 87 Year
  Sex: Male
  Weight: 81 kg

DRUGS (11)
  1. ASTONIN (FLUDROCORTISONE) [Suspect]
     Active Substance: FLUDROCORTISONE
     Dosage: .1 MILLIGRAM DAILY;  1?0?0?0
     Route: 048
  2. AMLODIPIN [Concomitant]
     Active Substance: AMLODIPINE BESYLATE
     Dosage: 5 MILLIGRAM DAILY;  0?0?1?0
     Route: 048
  3. PANTOPRAZOL [Concomitant]
     Active Substance: PANTOPRAZOLE SODIUM
     Dosage: 40 MILLIGRAM DAILY; 1?0?0?0
     Route: 048
  4. HYDROCORTISON [HYDROCORTISONE] [Suspect]
     Active Substance: HYDROCORTISONE
     Dosage: 10 MG, 2?0?1?0
     Route: 048
  5. CITALOPRAM [Concomitant]
     Active Substance: CITALOPRAM HYDROBROMIDE
     Dosage: 10 MILLIGRAM DAILY;  1?0?0?0
     Route: 048
  6. PANTHENOL [Concomitant]
     Active Substance: PANTHENOL
     Dosage: 300 MILLIGRAM DAILY; 1?1?1?0
     Route: 048
  7. METOPROLOL. [Concomitant]
     Active Substance: METOPROLOL
     Dosage: 47.5 MILLIGRAM DAILY; 1?0?0?0
     Route: 048
  8. HYDROCHLOROTHIAZID/RAMIPRIL [Suspect]
     Active Substance: HYDROCHLOROTHIAZIDE\RAMIPRIL
     Dosage: 1 DOSAGE FORMS DAILY; 12.5|2.5 MG, 1?0?0?0
     Route: 048
  9. RAMIPRIL. [Suspect]
     Active Substance: RAMIPRIL
     Dosage: 5 MILLIGRAM DAILY;  0?0?1?0
     Route: 048
  10. KALINOR?RETARD P 600MG [Concomitant]
     Dosage: 1800 MILLIGRAM DAILY; 1?1?1?0
     Route: 048
  11. TORASEMID [Suspect]
     Active Substance: TORSEMIDE
     Dosage: 5 MILLIGRAM DAILY; 1?0?0?0
     Route: 048

REACTIONS (3)
  - Dehydration [Unknown]
  - Hypotension [Unknown]
  - General physical health deterioration [Unknown]
